FAERS Safety Report 5615697-8 (Version None)
Quarter: 2008Q1

REPORT INFORMATION
  Report Type: 
  Country: None (occurrence: None)
  Receive Date: 20080206
  Receipt Date: 20080125
  Transmission Date: 20080703
  Serious: Yes (Other)
  Sender: FDA-Public Use
  Company Number: GB-JNJFOC-20080107219

PATIENT
  Age: 46 Year
  Sex: Female

DRUGS (14)
  1. FENTANYL HCL [Suspect]
     Indication: TUMOUR PAIN
     Route: 044
  2. ACTIQ [Interacting]
     Route: 002
  3. ACTIQ [Interacting]
     Indication: TUMOUR PAIN
     Route: 002
  4. PREGABALIN [Interacting]
     Indication: TUMOUR PAIN
     Route: 065
  5. BECLOMETHASONE DIPROPIONATE [Concomitant]
     Indication: DRUG USE FOR UNKNOWN INDICATION
     Route: 045
  6. CITALOPRAM HYDROBROMIDE [Concomitant]
     Indication: DRUG USE FOR UNKNOWN INDICATION
     Route: 065
  7. DICLOFENAC [Concomitant]
     Indication: PAIN
     Route: 065
  8. DOCUSATE SODIUM [Concomitant]
     Indication: DRUG USE FOR UNKNOWN INDICATION
     Route: 065
  9. HYOSCINE HBR HYT [Concomitant]
     Indication: DRUG USE FOR UNKNOWN INDICATION
     Route: 065
  10. LANSOPRAZOLE [Concomitant]
     Indication: DRUG USE FOR UNKNOWN INDICATION
     Route: 065
  11. MOVICOL [Concomitant]
     Indication: DRUG USE FOR UNKNOWN INDICATION
     Route: 065
  12. NIFEDIPINE [Concomitant]
     Indication: DRUG USE FOR UNKNOWN INDICATION
     Route: 065
  13. PARACETAMOL [Concomitant]
     Indication: PAIN
     Route: 065
  14. SIMVASTATIN [Concomitant]
     Indication: DRUG USE FOR UNKNOWN INDICATION
     Route: 065

REACTIONS (3)
  - DRUG INTERACTION [None]
  - RESPIRATORY DEPRESSION [None]
  - SLEEP APNOEA SYNDROME [None]
